FAERS Safety Report 4807720-5 (Version None)
Quarter: 2005Q4

REPORT INFORMATION
  Report Type: 
  Country: None (occurrence: None)
  Receive Date: 20051019
  Receipt Date: 20051003
  Transmission Date: 20060501
  Serious: Yes (Life-Threatening, Hospitalization)
  Sender: FDA-Public Use
  Company Number: GB-YAMANOUCHI-YEHQ20051087

PATIENT
  Age: 83 Year
  Sex: Female
  Weight: 56 kg

DRUGS (10)
  1. VESICARE [Suspect]
     Indication: URGE INCONTINENCE
     Dosage: 5 MG BID PO
     Route: 048
     Dates: start: 20050802
  2. ACETAMINOPHEN [Concomitant]
  3. MACROGOL [Concomitant]
  4. GTN-S [Concomitant]
  5. ASPIRIN [Concomitant]
  6. SIMVASTATIN [Concomitant]
  7. ATENOLOL [Concomitant]
  8. CALCIUM GLUCONATE [Concomitant]
  9. ERGOCALCIFEROL [Concomitant]
  10. BENDROFLUAZIDE [Concomitant]

REACTIONS (3)
  - BLOOD SODIUM DECREASED [None]
  - MALAISE [None]
  - NAUSEA [None]
